FAERS Safety Report 10206201 (Version 1)
Quarter: 2014Q2

REPORT INFORMATION
  Report Type: Spontaneous
  Country: US (occurrence: None)
  Receive Date: 20140528
  Receipt Date: 20140528
  Transmission Date: 20141212
  Serious: No
  Sender: FDA-Public Use
  Company Number: None

PATIENT
  Age: 62 Year
  Sex: Male

DRUGS (1)
  1. MERCAPTOPURINE [Suspect]
     Indication: AUTOIMMUNE HEPATITIS
     Dates: start: 20120501, end: 20120520

REACTIONS (10)
  - Drug-induced liver injury [None]
  - Hepatic fibrosis [None]
  - Cholestasis [None]
  - Toxicity to various agents [None]
  - Weight decreased [None]
  - White blood cell count increased [None]
  - Blood sodium decreased [None]
  - Blood creatinine increased [None]
  - Urine output decreased [None]
  - Liver transplant [None]
